FAERS Safety Report 11302124 (Version 1)
Quarter: 2015Q2

REPORT INFORMATION
  Report Type: Spontaneous
  Country: US (occurrence: None)
  Receive Date: 20150626
  Receipt Date: 20150626
  Transmission Date: 20150821
  Serious: No
  Sender: FDA-Public Use
  Company Number: 1000076275

PATIENT
  Sex: Female

DRUGS (2)
  1. XANAX (ALPRAZOLAM) (ALPRAZOLAM) [Concomitant]
  2. LINZESS [Suspect]
     Active Substance: LINACLOTIDE
     Indication: IRRITABLE BOWEL SYNDROME
     Dosage: 290MCG  (290 MCG, 1 IN 1 D)
     Dates: start: 201504, end: 20150429

REACTIONS (1)
  - Dyspnoea [None]

NARRATIVE: CASE EVENT DATE: 201504
